FAERS Safety Report 25378448 (Version 1)
Quarter: 2025Q2

REPORT INFORMATION
  Report Type: Spontaneous
  Country: FR (occurrence: FR)
  Receive Date: 20250530
  Receipt Date: 20250530
  Transmission Date: 20250717
  Serious: Yes (Hospitalization)
  Sender: ABBVIE
  Company Number: None

PATIENT
  Age: 61 Year
  Sex: Male
  Weight: 95.5 kg

DRUGS (1)
  1. FOSCARBIDOPA\FOSLEVODOPA [Suspect]
     Active Substance: FOSCARBIDOPA\FOSLEVODOPA
     Indication: Parkinson^s disease
     Route: 058
     Dates: start: 20250110

REACTIONS (3)
  - Anxiety [Not Recovered/Not Resolved]
  - Somatic hallucination [Not Recovered/Not Resolved]
  - Persecutory delusion [Not Recovered/Not Resolved]

NARRATIVE: CASE EVENT DATE: 20250409
